FAERS Safety Report 4283214-3 (Version None)
Quarter: 2004Q1

REPORT INFORMATION
  Report Type: 
  Country: None (occurrence: None)
  Receive Date: 20040129
  Receipt Date: 20040113
  Transmission Date: 20041129
  Serious: No
  Sender: FDA-Public Use
  Company Number: 2004SE00142

PATIENT
  Age: 50 Year
  Sex: Male
  Weight: 99 kg

DRUGS (5)
  1. AMIAS [Suspect]
     Indication: ANGINA PECTORIS
     Dosage: 4 MG DAILY PO
     Route: 048
     Dates: start: 20030331
  2. VALSARTAN [Suspect]
     Indication: ANGINA PECTORIS
     Dosage: 80 NG DAILY PO
     Route: 048
     Dates: start: 20030509, end: 20031215
  3. VALSARTAN [Suspect]
     Indication: ANGINA PECTORIS
     Dosage: 40 MG DAILY PO
     Route: 048
     Dates: start: 20031215
  4. ATORVASTATIN [Concomitant]
  5. APIRIN [Concomitant]

REACTIONS (1)
  - PSORIASIS [None]
